FAERS Safety Report 7591491-6 (Version None)
Quarter: 2011Q2

REPORT INFORMATION
  Report Type: 
  Country: None (occurrence: None)
  Receive Date: 20110627
  Receipt Date: 20110613
  Transmission Date: 20111010
  Serious: Yes (Hospitalization, Other)
  Sender: FDA-Public Use
  Company Number: 2011MA006651

PATIENT
  Age: 65 Year
  Sex: Female

DRUGS (5)
  1. DOXYCYCLINE [Concomitant]
  2. TRIMETHOPRIM [Concomitant]
  3. SERTRALINE HYDROCHLORIDE [Suspect]
     Indication: AFFECTIVE DISORDER
     Dosage: 50 MG; OD;UNK
  4. SULFAMETHOXAZOLE [Concomitant]
  5. LEVOFLOXACIN [Concomitant]

REACTIONS (3)
  - CYTOLYTIC HEPATITIS [None]
  - HEPATITIS TOXIC [None]
  - CHOLESTASIS [None]
